FAERS Safety Report 6823347-8 (Version None)
Quarter: 2010Q3

REPORT INFORMATION
  Report Type: 
  Country: None (occurrence: None)
  Receive Date: 20100708
  Receipt Date: 20100623
  Transmission Date: 20110219
  Serious: No
  Sender: FDA-Public Use
  Company Number: US-B.I. PHARMACEUTICALS,INC./RIDGEFIELD-2010-BP-07169BP

PATIENT
  Sex: Female

DRUGS (2)
  1. SPIRIVA [Suspect]
     Indication: DYSPNOEA
     Dosage: 18 MCG
     Route: 055
     Dates: start: 20070101, end: 20100201
  2. SPIRIVA [Suspect]
     Dosage: 18 MCG
     Route: 055
     Dates: start: 20100301

REACTIONS (11)
  - BLOOD CHOLESTEROL INCREASED [None]
  - COUGH [None]
  - DEPRESSION [None]
  - DYSPHAGIA [None]
  - DYSPHONIA [None]
  - GASTROOESOPHAGEAL REFLUX DISEASE [None]
  - HYPERTENSION [None]
  - INCREASED VISCOSITY OF BRONCHIAL SECRETION [None]
  - OROPHARYNGEAL PAIN [None]
  - PNEUMONIA [None]
  - THROAT IRRITATION [None]
